FAERS Safety Report 7738418-1 (Version None)
Quarter: 2011Q3

REPORT INFORMATION
  Report Type: 
  Country: None (occurrence: None)
  Receive Date: 20110908
  Receipt Date: 20110830
  Transmission Date: 20111222
  Serious: Yes (Other)
  Sender: FDA-Public Use
  Company Number: JP-NOVOPROD-333293

PATIENT

DRUGS (5)
  1. ASPIRIN [Concomitant]
     Dosage: 100 MG, QD
     Route: 048
  2. MAGMITT [Concomitant]
     Dosage: 750 MG, QD
     Route: 048
  3. METFORMIN HCL [Concomitant]
     Dosage: 750 MG, QD
     Route: 048
     Dates: start: 20110727, end: 20110805
  4. VICTOZA [Suspect]
     Dosage: 0.6 MG, QD
     Route: 058
     Dates: start: 20110805, end: 20110805
  5. VICTOZA [Suspect]
     Indication: TYPE 1 DIABETES MELLITUS
     Dosage: 0.3 MG, QD
     Route: 058
     Dates: start: 20110803

REACTIONS (3)
  - OXYGEN SATURATION DECREASED [None]
  - URTICARIA [None]
  - HYPOTENSION [None]
